FAERS Safety Report 11526654 (Version 1)
Quarter: 2015Q3

REPORT INFORMATION
  Report Type: Spontaneous
  Country: US (occurrence: US)
  Receive Date: 20150903
  Receipt Date: 20150903
  Transmission Date: 20151125
  Serious: No
  Sender: FDA-Public Use
  Company Number: US-ELI_LILLY_AND_COMPANY-US201311007096

PATIENT
  Sex: Female

DRUGS (2)
  1. CYMBALTA [Suspect]
     Active Substance: DULOXETINE HYDROCHLORIDE
     Dosage: 60 MG, QOD
     Dates: end: 201311
  2. CYMBALTA [Suspect]
     Active Substance: DULOXETINE HYDROCHLORIDE
     Indication: DRUG DISPENSING ERROR
     Dosage: 60 MG, QD
     Route: 065
     Dates: start: 201310

REACTIONS (9)
  - Nausea [Recovered/Resolved]
  - Palpitations [Unknown]
  - Abdominal discomfort [Recovered/Resolved]
  - Diarrhoea [Recovered/Resolved]
  - Insomnia [Unknown]
  - Visual impairment [Recovered/Resolved]
  - Obsessive thoughts [Unknown]
  - Anxiety [Recovered/Resolved]
  - Wrong drug administered [Recovering/Resolving]
